FAERS Safety Report 18132468 (Version 1)
Quarter: 2020Q3

REPORT INFORMATION
  Report Type: Spontaneous
  Country: US (occurrence: US)
  Receive Date: 20200811
  Receipt Date: 20200811
  Transmission Date: 20201103
  Serious: Yes (Hospitalization, Other)
  Sender: FDA-Public Use
  Company Number: US-CADILA HEALTHCARE LIMITED-US-ZYDUS-048895

PATIENT

DRUGS (9)
  1. LACOSAMIDE. [Suspect]
     Active Substance: LACOSAMIDE
     Indication: GENERALISED TONIC-CLONIC SEIZURE
     Dosage: 200 MILLIGRAM
     Route: 042
  2. LEVETIRACETAM. [Concomitant]
     Active Substance: LEVETIRACETAM
     Dosage: UNK
     Route: 065
  3. PROPOFOL. [Suspect]
     Active Substance: PROPOFOL
     Indication: GENERALISED TONIC-CLONIC SEIZURE
     Route: 042
  4. FELBAMATE. [Suspect]
     Active Substance: FELBAMATE
     Indication: GENERALISED TONIC-CLONIC SEIZURE
     Route: 065
  5. OXCARBAZEPINE. [Suspect]
     Active Substance: OXCARBAZEPINE
     Indication: GENERALISED TONIC-CLONIC SEIZURE
     Route: 065
  6. LEVETIRACETAM. [Concomitant]
     Active Substance: LEVETIRACETAM
     Indication: GENERALISED TONIC-CLONIC SEIZURE
     Dosage: 2000 MILLIGRAM
     Route: 042
  7. VALPROIC ACID. [Concomitant]
     Active Substance: VALPROIC ACID
     Indication: GENERALISED TONIC-CLONIC SEIZURE
     Route: 065
  8. PENTOBARBITAL. [Suspect]
     Active Substance: PENTOBARBITAL
     Indication: GENERALISED TONIC-CLONIC SEIZURE
  9. CLOBAZAM. [Concomitant]
     Active Substance: CLOBAZAM
     Indication: GENERALISED TONIC-CLONIC SEIZURE
     Route: 065

REACTIONS (5)
  - Unmasking of previously unidentified disease [Unknown]
  - Toxicity to various agents [Unknown]
  - Electrocardiogram repolarisation abnormality [Not Recovered/Not Resolved]
  - Electrocardiogram QRS complex prolonged [Recovering/Resolving]
  - Atrioventricular block first degree [Recovered/Resolved]
